FAERS Safety Report 10136311 (Version 2)
Quarter: 2014Q2

REPORT INFORMATION
  Report Type: Spontaneous
  Country: CN (occurrence: CN)
  Receive Date: 20140429
  Receipt Date: 20140517
  Transmission Date: 20141212
  Serious: Yes (Hospitalization)
  Sender: FDA-Public Use
  Company Number: CN-JNJFOC-20140410224

PATIENT
  Age: 17 Year
  Sex: Female
  Weight: 51 kg

DRUGS (2)
  1. TYLENOL [Suspect]
     Indication: UPPER RESPIRATORY TRACT INFECTION
     Route: 048
     Dates: start: 20130309, end: 20130310
  2. AZITHROMYCIN [Suspect]
     Indication: UPPER RESPIRATORY TRACT INFECTION
     Route: 048
     Dates: start: 20130309, end: 20130310

REACTIONS (1)
  - Erythema multiforme [Recovered/Resolved]
